FAERS Safety Report 7347702-5 (Version None)
Quarter: 2011Q1

REPORT INFORMATION
  Report Type: 
  Country: None (occurrence: None)
  Receive Date: 20110311
  Receipt Date: 20110303
  Transmission Date: 20110831
  Serious: Yes (Other)
  Sender: FDA-Public Use
  Company Number: B0703478A

PATIENT
  Sex: Female

DRUGS (3)
  1. ALKERAN [Suspect]
     Dates: start: 20100104, end: 20101126
  2. CORTANCYL [Suspect]
     Route: 048
     Dates: start: 20100104, end: 20101126
  3. THALIDOMIDE [Suspect]
     Route: 048
     Dates: start: 20100104, end: 20101126

REACTIONS (1)
  - ACUTE MYELOID LEUKAEMIA [None]
